FAERS Safety Report 8185809-3 (Version None)
Quarter: 2012Q1

REPORT INFORMATION
  Report Type: 
  Country: None (occurrence: None)
  Receive Date: 20120305
  Receipt Date: 20120224
  Transmission Date: 20120608
  Serious: Yes (Other)
  Sender: FDA-Public Use
  Company Number: US-ASTRAZENECA-2012SE13219

PATIENT
  Sex: Female
  Weight: 90.7 kg

DRUGS (23)
  1. SEROQUEL XR [Suspect]
     Indication: SCHIZOPHRENIA
     Route: 048
     Dates: start: 20040101
  2. OMEPRAZOLE [Concomitant]
     Indication: GASTROOESOPHAGEAL REFLUX DISEASE
  3. EFFEXOR [Concomitant]
     Indication: DEPRESSION
  4. GLYPIZIDE [Concomitant]
  5. SEROQUEL XR [Suspect]
     Route: 048
     Dates: start: 20040101
  6. TRAMADOL HCL [Concomitant]
     Indication: RESTLESS LEGS SYNDROME
  7. GLYPIZIDE [Concomitant]
     Indication: DIABETES MELLITUS
  8. PREDNISONE TAB [Concomitant]
     Indication: LUNG DISORDER
  9. XANAX [Concomitant]
     Dosage: PRN
  10. OMEGA FISHOILS [Concomitant]
     Dosage: DAILY
  11. FERROUS GLUCONATE [Concomitant]
     Indication: RESTLESS LEGS SYNDROME
  12. FLONASE [Concomitant]
     Dosage: 2 SPY/NOSTRIL DAILY
  13. SAPHRIS [Concomitant]
  14. SPIRIVA [Concomitant]
     Dosage: BID
  15. BACTRIM [Concomitant]
     Dosage: Q3WK
  16. MYCOPHENOLATE MOFETIL (CELLCEPT) [Concomitant]
     Indication: LUNG DISORDER
  17. BUTALBITAL [Concomitant]
     Dosage: PRN 50/325/40 MG
  18. SEROQUEL XR [Suspect]
     Route: 048
     Dates: start: 20040101
  19. COLACE [Concomitant]
  20. GABAPENTIN [Concomitant]
     Indication: RESTLESS LEGS SYNDROME
  21. MULTI-VITAMINS [Concomitant]
     Dosage: DAILY
  22. FLOVENT [Concomitant]
     Indication: LUNG DISORDER
  23. LANTUS [Concomitant]
     Indication: DIABETES MELLITUS

REACTIONS (5)
  - BLOOD GLUCOSE INCREASED [None]
  - FATIGUE [None]
  - WEIGHT INCREASED [None]
  - INTERSTITIAL LUNG DISEASE [None]
  - WRONG TECHNIQUE IN DRUG USAGE PROCESS [None]
